FAERS Safety Report 25453013 (Version 1)
Quarter: 2025Q2

REPORT INFORMATION
  Report Type: Spontaneous
  Country: US (occurrence: US)
  Receive Date: 20250618
  Receipt Date: 20250618
  Transmission Date: 20250716
  Serious: Yes (Other)
  Sender: SK LIFE SCIENCE
  Company Number: US-SK LIFE SCIENCE, INC-SKPVG-2025-001211

PATIENT

DRUGS (3)
  1. XCOPRI [Suspect]
     Active Substance: CENOBAMATE
     Indication: Epilepsy
     Route: 065
  2. XCOPRI [Suspect]
     Active Substance: CENOBAMATE
     Dosage: 250MG AT BEDTIME
     Route: 065
  3. XCOPRI [Suspect]
     Active Substance: CENOBAMATE
     Route: 065

REACTIONS (7)
  - Myocarditis [Unknown]
  - Pericarditis [Unknown]
  - Bradycardia [Unknown]
  - Overdose [Unknown]
  - Fatigue [Unknown]
  - Dizziness [Unknown]
  - Confusional state [Unknown]
